FAERS Safety Report 13667677 (Version 1)
Quarter: 2017Q2

REPORT INFORMATION
  Report Type: Spontaneous
  Country: US (occurrence: US)
  Receive Date: 20170620
  Receipt Date: 20170620
  Transmission Date: 20170830
  Serious: No
  Sender: FDA-Public Use
  Company Number: US-009507513-1706USA002497

PATIENT
  Age: 18 Year
  Sex: Male
  Weight: 68 kg

DRUGS (5)
  1. LIDOCAINE. [Suspect]
     Active Substance: LIDOCAINE
     Indication: ANALGESIC THERAPY
     Dosage: 15 MICROGRAM/KG/MIN, UNK
  2. LIDOCAINE. [Suspect]
     Active Substance: LIDOCAINE
     Dosage: 30 MICROGRAM/KG/MIN, UNK
  3. KETAMINE [Suspect]
     Active Substance: KETAMINE
     Indication: ANALGESIC THERAPY
     Dosage: UNK
  4. LIDOCAINE. [Suspect]
     Active Substance: LIDOCAINE
     Dosage: 30 MICROGRAM/KG/MIN, UNK
  5. HEXADROL [Suspect]
     Active Substance: DEXAMETHASONE
     Dosage: UNK, HIGH DOSE
     Route: 048

REACTIONS (2)
  - Vision blurred [Recovered/Resolved]
  - Hallucination, visual [Recovered/Resolved]
